FAERS Safety Report 14678499 (Version 1)
Quarter: 2018Q1

REPORT INFORMATION
  Report Type: Spontaneous
  Country: CA (occurrence: CA)
  Receive Date: 20180326
  Receipt Date: 20180326
  Transmission Date: 20180509
  Serious: Yes (Other)
  Sender: FDA-Public Use
  Company Number: CA-TEVA-2018-CA-874170

PATIENT
  Age: 7 Year
  Sex: Male
  Weight: 35 kg

DRUGS (10)
  1. HYDROCORTISONE. [Concomitant]
     Active Substance: HYDROCORTISONE
  2. L-ASPARAGINASE (ESCHERICHIA) [Concomitant]
     Active Substance: ASPARAGINASE
  3. DOXORUBICIN HYDROCHLORIDE INJECTION [Suspect]
     Active Substance: DOXORUBICIN HYDROCHLORIDE
     Indication: ACUTE LYMPHOCYTIC LEUKAEMIA
  4. METHOTREXATE. [Concomitant]
     Active Substance: METHOTREXATE
  5. PEG-L-ASPARAGINASE [Concomitant]
     Active Substance: PEGASPARGASE
  6. VINCRISTINE SULFATE. [Concomitant]
     Active Substance: VINCRISTINE SULFATE
  7. ASPARAGINASE (ERWINIA) [Concomitant]
     Active Substance: ASPARAGINASE ERWINIA CHRYSANTHEMI
  8. DOXORUBICIN HYDROCHLORIDE INJECTION [Suspect]
     Active Substance: DOXORUBICIN HYDROCHLORIDE
     Indication: PRECURSOR B-LYMPHOBLASTIC LYMPHOMA
     Route: 042
  9. MERCAPTOPURINE. [Concomitant]
     Active Substance: MERCAPTOPURINE
  10. CYTARABINE INJECTION [Concomitant]
     Active Substance: CYTARABINE

REACTIONS (2)
  - Ejection fraction decreased [Recovered/Resolved]
  - Cardiotoxicity [Recovered/Resolved]
